FAERS Safety Report 5414253-4 (Version None)
Quarter: 2007Q3

REPORT INFORMATION
  Report Type: 
  Country: None (occurrence: None)
  Receive Date: 20070814
  Receipt Date: 20070801
  Transmission Date: 20080115
  Serious: Yes (Other)
  Sender: FDA-Public Use
  Company Number: AU-PFIZER INC-2007064916

PATIENT
  Sex: Female
  Weight: 54 kg

DRUGS (7)
  1. VIBRAMYCIN [Suspect]
     Indication: INFLAMMATION
  2. ALL OTHER THERAPEUTIC PRODUCTS [Concomitant]
  3. ZANIDIP [Concomitant]
  4. PLAVIX [Concomitant]
  5. RABEPRAZOLE SODIUM [Concomitant]
  6. PANADOL [Concomitant]
  7. RISPERDAL [Concomitant]

REACTIONS (3)
  - BLOOD PRESSURE INCREASED [None]
  - CONFUSIONAL STATE [None]
  - VERTIGO [None]
